FAERS Safety Report 8975059 (Version 3)
Quarter: 2013Q1

REPORT INFORMATION
  Report Type: Spontaneous
  Country: US (occurrence: US)
  Receive Date: 20121220
  Receipt Date: 20130114
  Transmission Date: 20140127
  Serious: Yes (Hospitalization, Other)
  Sender: FDA-Public Use
  Company Number: US-PERRIGO-12US010814

PATIENT
  Age: 65 Year
  Sex: Female
  Weight: 63.49 kg

DRUGS (11)
  1. LORATADINE 10 MG 612 [Suspect]
     Indication: MYCOTIC ALLERGY
     Dosage: 10 MG, QD
     Route: 048
     Dates: start: 20040625, end: 20120908
  2. LORATADINE 10 MG 612 [Suspect]
     Dosage: 10 MG, QD
     Route: 048
     Dates: start: 20120909, end: 20120921
  3. LORATADINE 10 MG 612 [Suspect]
     Dosage: 10 MG, QD
     Route: 048
     Dates: start: 20120924, end: 20121016
  4. BABY ASPIRIN [Suspect]
     Indication: ROUTINE HEALTH MAINTENANCE
     Dosage: UNK
     Route: 048
     Dates: end: 20120921
  5. BABY ASPIRIN [Suspect]
     Dosage: UNK
     Route: 048
     Dates: start: 20120924, end: 20121016
  6. GLUCOSAMINE [Suspect]
     Indication: SUPPLEMENTATION THERAPY
     Dosage: UNK
     Route: 048
     Dates: end: 20120921
  7. GLUCOSAMINE [Suspect]
     Dosage: UNK
     Route: 048
     Dates: start: 20120924, end: 20121016
  8. CALTRATE [Suspect]
     Indication: SUPPLEMENTATION THERAPY
     Dosage: UNK
     Route: 048
     Dates: end: 20120921
  9. CALTRATE [Suspect]
     Dosage: UNK
     Route: 048
     Dates: start: 20120924, end: 20121016
  10. CENTRUM [Suspect]
     Indication: SUPPLEMENTATION THERAPY
     Dosage: UNK
     Route: 048
     Dates: end: 20120921
  11. CENTRUM [Suspect]
     Dosage: UNK
     Route: 048
     Dates: start: 20120924, end: 20121016

REACTIONS (5)
  - Diarrhoea [Recovered/Resolved]
  - Hepatic enzyme abnormal [Recovered/Resolved]
  - Vomiting [Recovered/Resolved]
  - Decreased appetite [Recovered/Resolved]
  - Weight decreased [Unknown]
